FAERS Safety Report 12365118 (Version 3)
Quarter: 2016Q2

REPORT INFORMATION
  Report Type: Spontaneous
  Country: RU (occurrence: RU)
  Receive Date: 20160513
  Receipt Date: 20160608
  Transmission Date: 20160815
  Serious: No
  Sender: FDA-Public Use
  Company Number: RU-AMGEN-RUSSP2016059742

PATIENT
  Age: 69 Year
  Sex: Female

DRUGS (7)
  1. CALCIUM SANDOZ [Concomitant]
     Active Substance: CALCIUM
     Dosage: 1500 MG, QD (BEFORE PROLIA)
     Route: 065
  2. NIMESIL [Concomitant]
     Active Substance: NIMESULIDE
     Indication: PAIN
     Dosage: 2 G, AS NECESSARY
     Route: 065
  3. CALCIUM SANDOZ [Concomitant]
     Active Substance: CALCIUM
     Dosage: 1000 MG, QD (BEFORE PROLIA)
     Route: 065
  4. PROLIA [Suspect]
     Active Substance: DENOSUMAB
     Indication: OSTEOPOROSIS
     Dosage: 60 MG, Q6MO
     Route: 042
     Dates: start: 20160416
  5. VIGANTOL [Concomitant]
     Dosage: 25 DROPS (BEFORE PROLIA) AND 10DROPS (AFTER PROLIA), Q2WK
     Route: 065
  6. OMEGA-3 ACIDS [Concomitant]
     Active Substance: OMEGA-3 FATTY ACIDS
     Dosage: 1000 MG, QD
     Route: 048
  7. ATORIS [Concomitant]
     Active Substance: ATORVASTATIN CALCIUM
     Dosage: 10 MG, QD
     Route: 065

REACTIONS (4)
  - Bone pain [Not Recovered/Not Resolved]
  - Incorrect route of drug administration [Unknown]
  - Pain in extremity [Not Recovered/Not Resolved]
  - Arthralgia [Not Recovered/Not Resolved]

NARRATIVE: CASE EVENT DATE: 20160501
